FAERS Safety Report 9958116 (Version 1)
Quarter: 2014Q1

REPORT INFORMATION
  Report Type: Spontaneous
  Country: US (occurrence: US)
  Receive Date: 20140304
  Receipt Date: 20140304
  Transmission Date: 20141002
  Serious: No
  Sender: FDA-Public Use
  Company Number: US-ABBVIE-13P-163-1096011-00

PATIENT
  Sex: Female
  Weight: 74.91 kg

DRUGS (6)
  1. HUMIRA [Suspect]
     Indication: RHEUMATOID ARTHRITIS
     Dates: start: 2010
  2. HUMIRA [Suspect]
     Indication: CROHN^S DISEASE
  3. ARAVA [Concomitant]
     Indication: PRODUCT USED FOR UNKNOWN INDICATION
  4. SYMAX [Concomitant]
     Indication: CROHN^S DISEASE
  5. PREMARIN [Concomitant]
     Indication: HORMONE LEVEL ABNORMAL
  6. HYDROCODONE [Concomitant]
     Indication: OSTEOARTHRITIS

REACTIONS (2)
  - Nodule [Recovering/Resolving]
  - General symptom [Recovering/Resolving]
